FAERS Safety Report 14799583 (Version 1)
Quarter: 2018Q2

REPORT INFORMATION
  Report Type: Report from Study
  Country: JP (occurrence: JP)
  Receive Date: 20180424
  Receipt Date: 20180424
  Transmission Date: 20180711
  Serious: Yes (Other)
  Sender: FDA-Public Use
  Company Number: JP-PFIZER INC-2018161295

PATIENT

DRUGS (1)
  1. IRINOTECAN HCL [Suspect]
     Active Substance: IRINOTECAN HYDROCHLORIDE
     Indication: GASTRIC CANCER
     Dosage: 150 MG/M2, CYCLIC (90-MIN INTRAVENOUS INFUSION EVERY 2 WEEKS)
     Route: 042

REACTIONS (1)
  - Neuropathy peripheral [Unknown]
